FAERS Safety Report 21553028 (Version 6)
Quarter: 2023Q2

REPORT INFORMATION
  Report Type: Report from Study
  Country: CO (occurrence: CO)
  Receive Date: 20221104
  Receipt Date: 20230607
  Transmission Date: 20230721
  Serious: Yes (Other)
  Sender: FDA-Public Use
  Company Number: CO-002147023-NVSC2021CO114670

PATIENT
  Sex: Female

DRUGS (2)
  1. AFINITOR [Suspect]
     Active Substance: EVEROLIMUS
     Indication: Pancreatic neuroendocrine tumour
     Dosage: 10 MG, QD
     Route: 048
  2. AFINITOR [Suspect]
     Active Substance: EVEROLIMUS
     Dosage: UNK
     Route: 048

REACTIONS (14)
  - Thrombosis [Unknown]
  - Haemorrhage [Unknown]
  - Pain [Unknown]
  - Eye inflammation [Unknown]
  - Dizziness [Unknown]
  - Fall [Unknown]
  - Illness [Unknown]
  - Speech disorder [Unknown]
  - Stomatitis [Unknown]
  - Dry skin [Unknown]
  - Pruritus [Unknown]
  - Viral infection [Unknown]
  - General physical health deterioration [Unknown]
  - Pharyngitis [Unknown]
